FAERS Safety Report 25108810 (Version 1)
Quarter: 2025Q1

REPORT INFORMATION
  Report Type: Report from Study
  Country: IE (occurrence: IE)
  Receive Date: 20250322
  Receipt Date: 20250322
  Transmission Date: 20250409
  Serious: Yes (Other)
  Sender: ROCHE
  Company Number: IE-ROCHE-10000218569

PATIENT
  Sex: Female

DRUGS (1)
  1. OCREVUS [Suspect]
     Active Substance: OCRELIZUMAB
     Indication: Product used for unknown indication
     Dosage: DOSE AND UNIT: 600MGS X 2 VIALS 300MGS
     Route: 042
     Dates: start: 20230307

REACTIONS (4)
  - Lower respiratory tract infection [Recovering/Resolving]
  - Respiratory tract infection [Recovered/Resolved]
  - Muscle spasms [Recovering/Resolving]
  - Illness [Recovered/Resolved]

NARRATIVE: CASE EVENT DATE: 20250224
